FAERS Safety Report 9745758 (Version 1)
Quarter: 2013Q4

REPORT INFORMATION
  Report Type: Spontaneous
  Country: US (occurrence: None)
  Receive Date: 20131206
  Receipt Date: 20131206
  Transmission Date: 20140711
  Serious: No
  Sender: FDA-Public Use
  Company Number: None

PATIENT
  Age: 51 Year
  Sex: Female

DRUGS (1)
  1. SIMPONI [Suspect]
     Indication: ANKYLOSING SPONDYLITIS
     Dosage: 5MG, EVERY MONTH, SUB Q
     Dates: start: 20131127

REACTIONS (5)
  - Paraesthesia [None]
  - Pain [None]
  - Local swelling [None]
  - Temperature intolerance [None]
  - Unevaluable event [None]
